FAERS Safety Report 6264378-9 (Version None)
Quarter: 2009Q3

REPORT INFORMATION
  Report Type: 
  Country: None (occurrence: None)
  Receive Date: 20090710
  Receipt Date: 20090702
  Transmission Date: 20100115
  Serious: Yes (Other)
  Sender: FDA-Public Use
  Company Number: B0578964A

PATIENT
  Age: 50 Year
  Sex: Male

DRUGS (2)
  1. CEFTAZIDIME [Suspect]
     Indication: STAPHYLOCOCCAL INFECTION
     Dosage: 1G THREE TIMES PER DAY
  2. PARACETAMOL [Concomitant]

REACTIONS (11)
  - CHILLS [None]
  - DRUG RASH WITH EOSINOPHILIA AND SYSTEMIC SYMPTOMS [None]
  - EOSINOPHILIA [None]
  - FACE OEDEMA [None]
  - HEPATIC ENZYME INCREASED [None]
  - HYPOACUSIS [None]
  - LEUKOCYTOSIS [None]
  - LIVER DISORDER [None]
  - LYMPHADENOPATHY [None]
  - PYREXIA [None]
  - RASH [None]
